FAERS Safety Report 6625584-4 (Version None)
Quarter: 2010Q1

REPORT INFORMATION
  Report Type: 
  Country: None (occurrence: None)
  Receive Date: 20100223
  Receipt Date: 20091110
  Transmission Date: 20100710
  Serious: No
  Sender: FDA-Public Use
  Company Number: 8054476

PATIENT
  Sex: Female

DRUGS (2)
  1. CERTOLIZUMAB PEGOL (UCB, INC) [Suspect]
     Indication: CROHN'S DISEASE
     Dosage: 400 MG ONCE MONTHLY SUBCUTANEOUS, 400 MG 1X/2 WEEKS, EVERY TWO WEEKS SUBCUTANEOUS
     Route: 058
     Dates: start: 20081119, end: 20090401
  2. CERTOLIZUMAB PEGOL (UCB, INC) [Suspect]
     Indication: CROHN'S DISEASE
     Dosage: 400 MG ONCE MONTHLY SUBCUTANEOUS, 400 MG 1X/2 WEEKS, EVERY TWO WEEKS SUBCUTANEOUS
     Route: 058
     Dates: start: 20090414

REACTIONS (1)
  - CROHN'S DISEASE [None]
